FAERS Safety Report 8859105 (Version 1)
Quarter: 2012Q4

REPORT INFORMATION
  Report Type: Spontaneous
  Country: US (occurrence: None)
  Receive Date: 20121024
  Receipt Date: 20121024
  Transmission Date: 20130627
  Serious: Yes (Hospitalization)
  Sender: FDA-Public Use
  Company Number: None

PATIENT
  Age: 2 Year
  Sex: Female
  Weight: 9.6 kg

DRUGS (8)
  1. SILDENAFIL [Suspect]
     Indication: PULMONARY HYPERTENSION
     Dosage: 2ml TID po
     Route: 048
     Dates: start: 20121007, end: 20121015
  2. ASPIRIN [Concomitant]
  3. SYMBICORT [Concomitant]
  4. FUROSEMIDE [Concomitant]
  5. RANITIDINE [Concomitant]
  6. SPIRONOLACTONE [Concomitant]
  7. ALBUTEROL [Concomitant]
  8. ACETAMINOPHEN [Concomitant]

REACTIONS (3)
  - Flushing [None]
  - Tachycardia [None]
  - Hypoxia [None]
